FAERS Safety Report 7929997-X (Version None)
Quarter: 2011Q4

REPORT INFORMATION
  Report Type: 
  Country: None (occurrence: None)
  Receive Date: 20111121
  Receipt Date: 20111110
  Transmission Date: 20120403
  Serious: Yes (Hospitalization)
  Sender: FDA-Public Use
  Company Number: PHFR2011IE01081

PATIENT
  Sex: Male
  Weight: 85 kg

DRUGS (5)
  1. LANSOPRAZOLE [Concomitant]
     Dosage: 30 MG, IN MORNING
  2. KWELLS [Concomitant]
     Dosage: 300 MG, PRN
     Route: 048
  3. CLOZARIL [Suspect]
     Indication: SCHIZOPHRENIA
     Dosage: 275 MG DAILY (50 MG MORNING +225 MG NIGHT)
     Route: 048
     Dates: start: 20060614
  4. CLONAZEPAM [Concomitant]
     Dosage: 0.5 MG,
     Route: 048
  5. VALPROATE SODIUM [Concomitant]
     Dosage: 1200 MG, BID
     Route: 048

REACTIONS (3)
  - MENTAL IMPAIRMENT [None]
  - MALAISE [None]
  - MANIA [None]
